FAERS Safety Report 6344384-6 (Version None)
Quarter: 2009Q3

REPORT INFORMATION
  Report Type: 
  Country: None (occurrence: None)
  Receive Date: 20090908
  Receipt Date: 20090608
  Transmission Date: 20100115
  Serious: Yes (Death, Other)
  Sender: FDA-Public Use
  Company Number: US-PFIZER INC-2009215440

PATIENT
  Sex: Female

DRUGS (6)
  1. REVATIO [Suspect]
     Indication: PULMONARY HYPERTENSION
     Dosage: 20 MG, 3X/DAY
     Dates: start: 20080220
  2. INSULIN [Suspect]
     Indication: TYPE 2 DIABETES MELLITUS
  3. CITALOPRAM [Concomitant]
  4. FUROSEMIDE [Concomitant]
  5. POTASSIUM CHLORIDE [Concomitant]
  6. REMODULIN [Concomitant]

REACTIONS (2)
  - ALCOHOL DETOXIFICATION [None]
  - TREATMENT NONCOMPLIANCE [None]
